FAERS Safety Report 4848926-9 (Version None)
Quarter: 2005Q4

REPORT INFORMATION
  Report Type: 
  Country: None (occurrence: None)
  Receive Date: 20051121
  Receipt Date: 20050519
  Transmission Date: 20060501
  Serious: Yes (Other)
  Sender: FDA-Public Use
  Company Number: HQWYE881019OCT04

PATIENT
  Age: 26 Year
  Sex: Female

DRUGS (1)
  1. TRI-LEVLEN 28 [Suspect]
     Indication: ORAL CONTRACEPTION
     Dosage: 1 TABLET 1X PER 1 DAY, ORAL
     Route: 048
     Dates: start: 20010101, end: 20040501

REACTIONS (8)
  - ACNE [None]
  - ALOPECIA [None]
  - CHLOASMA [None]
  - DEPRESSED MOOD [None]
  - MASTOPTOSIS [None]
  - SKIN DISCOLOURATION [None]
  - WEIGHT [None]
  - WEIGHT INCREASED [None]
